FAERS Safety Report 5869497-4 (Version None)
Quarter: 2008Q3

REPORT INFORMATION
  Report Type: 
  Country: None (occurrence: None)
  Receive Date: 20080903
  Receipt Date: 20080902
  Transmission Date: 20090109
  Serious: Yes (Other)
  Sender: FDA-Public Use
  Company Number: US-GILEAD-2008-0017005

PATIENT
  Age: 34 Year
  Sex: Female

DRUGS (1)
  1. VIREAD [Suspect]
     Indication: HEPATITIS B
     Route: 048
     Dates: start: 20071201

REACTIONS (1)
  - ABORTION SPONTANEOUS [None]
